FAERS Safety Report 20765851 (Version 6)
Quarter: 2024Q2

REPORT INFORMATION
  Report Type: Spontaneous
  Country: US (occurrence: US)
  Receive Date: 20220428
  Receipt Date: 20240402
  Transmission Date: 20240716
  Serious: No
  Sender: FDA-Public Use
  Company Number: US-PFIZER INC-202200397531

PATIENT
  Age: 69 Year
  Sex: Female

DRUGS (1)
  1. IBRANCE [Suspect]
     Active Substance: PALBOCICLIB
     Dosage: 100 MG
     Dates: start: 20220222

REACTIONS (9)
  - Neoplasm progression [Unknown]
  - Stress [Unknown]
  - Depressed mood [Unknown]
  - Asthenia [Unknown]
  - Fatigue [Unknown]
  - Accident [Unknown]
  - Swelling face [Unknown]
  - Vision blurred [Unknown]
  - Nasopharyngitis [Unknown]

NARRATIVE: CASE EVENT DATE: 20220101
